FAERS Safety Report 9994734 (Version 1)
Quarter: 2014Q1

REPORT INFORMATION
  Report Type: Spontaneous
  Country: US (occurrence: None)
  Receive Date: 20140307
  Receipt Date: 20140307
  Transmission Date: 20141002
  Serious: Yes (Other)
  Sender: FDA-Public Use
  Company Number: None

PATIENT
  Sex: Female

DRUGS (24)
  1. ACTHAR [Suspect]
     Indication: RHEUMATOID ARTHRITIS
     Dosage: PREVIOUS USE UNKNOWN, UNKNOWN, UNKNOWN
  2. ALPRAZOLAM [Concomitant]
  3. AZITHROMYCIN [Concomitant]
  4. CALCITRATE [Concomitant]
  5. CHLORDIAZEPOXIDE/AMIT [Concomitant]
  6. D-AMPHETAMINE SALTS [Concomitant]
  7. DICYCLOMINE [Concomitant]
  8. CIPROFLOXACIN [Concomitant]
  9. FLUCONAZOLE [Concomitant]
  10. LEVOFLOXACIN [Concomitant]
  11. LEVOTHYROXINE [Concomitant]
  12. METOCLOPRAMIDE [Concomitant]
  13. MONTELUKAST [Concomitant]
  14. MUPIROCIN 2% OINTIMENT [Concomitant]
  15. NITROFURANTOIN MON/MAC [Concomitant]
  16. OMEPRAZOLE [Concomitant]
  17. OMNARIS [Concomitant]
  18. ONDANSETRON ODT [Concomitant]
  19. PANTOPRAZOLE [Concomitant]
  20. PREDNISONE [Concomitant]
  21. PROMETHAZINE [Concomitant]
  22. PROPRANOLOL [Concomitant]
  23. SUPREP BOWEL PREP SOLUTION [Concomitant]
  24. TAMIFLU [Concomitant]

REACTIONS (2)
  - Adverse drug reaction [None]
  - Product quality issue [None]
